FAERS Safety Report 9524977 (Version 2)
Quarter: 2013Q3

REPORT INFORMATION
  Report Type: Spontaneous
  Country: US (occurrence: US)
  Receive Date: 20130916
  Receipt Date: 20130927
  Transmission Date: 20140515
  Serious: Yes (Hospitalization, Other)
  Sender: FDA-Public Use
  Company Number: US-BAYER-2013-111280

PATIENT
  Age: 59 Year
  Sex: Female
  Weight: 51.7 kg

DRUGS (1)
  1. BAYER GENUINE ASPIRIN ORIGINAL STRENGTH [Suspect]
     Indication: HEADACHE
     Dosage: 2-4 TAB, ONCE
     Route: 048
     Dates: start: 2003

REACTIONS (2)
  - Epistaxis [Recovered/Resolved]
  - Haemorrhagic diathesis [None]
